FAERS Safety Report 7231307-0 (Version None)
Quarter: 2011Q1

REPORT INFORMATION
  Report Type: 
  Country: None (occurrence: None)
  Receive Date: 20110118
  Receipt Date: 20110105
  Transmission Date: 20110831
  Serious: Yes (Other)
  Sender: FDA-Public Use
  Company Number: PHHY2011US01159

PATIENT
  Age: 21 Year

DRUGS (3)
  1. ITRACONAZOLE [Suspect]
     Indication: HISTOPLASMOSIS
     Dosage: 400 MG/DAY
  2. MERCAPTOPURINE [Concomitant]
     Indication: IMMUNOSUPPRESSANT DRUG THERAPY
     Dosage: UNK
  3. INFLIXIMAB [Concomitant]
     Indication: IMMUNOSUPPRESSANT DRUG THERAPY
     Dosage: UNK

REACTIONS (2)
  - INFLAMMATORY BOWEL DISEASE [None]
  - CONDITION AGGRAVATED [None]
